FAERS Safety Report 4860438-5 (Version None)
Quarter: 2005Q4

REPORT INFORMATION
  Report Type: 
  Country: None (occurrence: None)
  Receive Date: 20051215
  Receipt Date: 20051118
  Transmission Date: 20060501
  Serious: Yes (Other)
  Sender: FDA-Public Use
  Company Number: 2005151441

PATIENT
  Sex: Female
  Weight: 71.6683 kg

DRUGS (3)
  1. ACCUPRIL [Suspect]
     Indication: HYPERTENSION
     Dosage: SEE IMAGE
  2. ACCUPRIL [Suspect]
     Indication: HYPERTENSION
     Dosage: SEE IMAGE
     Dates: start: 19990101
  3. TOPROL (METOPROLOL) [Suspect]
     Indication: HYPERTENSION

REACTIONS (7)
  - BLOOD PRESSURE INCREASED [None]
  - CATARACT [None]
  - DYSPNOEA [None]
  - EYELID VASCULAR DISORDER [None]
  - FLATULENCE [None]
  - MYOCARDIAL INFARCTION [None]
  - OEDEMA PERIPHERAL [None]
